FAERS Safety Report 5522511-8 (Version None)
Quarter: 2007Q4

REPORT INFORMATION
  Report Type: 
  Country: None (occurrence: None)
  Receive Date: 20071120
  Receipt Date: 20071113
  Transmission Date: 20080405
  Serious: Yes (Hospitalization)
  Sender: FDA-Public Use
  Company Number: JP-ABBOTT-03P-087-0233135-00

PATIENT
  Sex: Male
  Weight: 53 kg

DRUGS (64)
  1. NORVIR [Suspect]
     Indication: HIV INFECTION
     Route: 048
     Dates: start: 19990929, end: 20021028
  2. KALETRA [Suspect]
     Indication: HIV INFECTION
     Route: 048
     Dates: start: 20030219, end: 20061116
  3. KALETRA [Suspect]
     Indication: HIV INFECTION
     Route: 048
     Dates: start: 20061117
  4. DIDANOSINE [Suspect]
     Indication: HIV INFECTION
     Route: 048
     Dates: start: 20020401, end: 20021028
  5. STAVUDINE [Suspect]
     Indication: HIV INFECTION
     Route: 048
     Dates: start: 20020401, end: 20021021
  6. SAQUINAVIR [Suspect]
     Indication: HIV INFECTION
     Route: 048
     Dates: start: 20020401, end: 20021028
  7. ABACAVIR [Suspect]
     Indication: HIV INFECTION
     Route: 048
     Dates: start: 20021022, end: 20021028
  8. POLAPREZINC [Suspect]
     Indication: GASTRITIS
     Route: 048
     Dates: start: 20020401, end: 20021028
  9. POLAPREZINC [Suspect]
     Route: 048
     Dates: start: 20021224, end: 20030623
  10. LAMIVUDINE [Suspect]
     Indication: HIV INFECTION
     Route: 048
     Dates: start: 20030219
  11. TENOFOVIR DISOPROXIL FUMARATE [Suspect]
     Indication: HIV INFECTION
     Route: 048
     Dates: start: 20030219
  12. BLOOD COAGULATION FACTORS [Concomitant]
     Indication: FACTOR VIII DEFICIENCY
     Dosage: 5-6 KU
     Route: 042
     Dates: start: 20020401
  13. MEFENAMIC ACID [Concomitant]
     Indication: HEADACHE
     Route: 048
     Dates: start: 20020401, end: 20021028
  14. MEFENAMIC ACID [Concomitant]
     Route: 048
     Dates: start: 20030108, end: 20040528
  15. BROTIZOLAM [Concomitant]
     Indication: INSOMNIA
     Route: 048
     Dates: start: 20020401, end: 20051103
  16. BROTIZOLAM [Concomitant]
     Route: 048
     Dates: start: 20021224
  17. SENNOSIDE [Concomitant]
     Indication: CONSTIPATION
     Route: 048
     Dates: start: 20020401, end: 20021028
  18. SENNOSIDE [Concomitant]
     Route: 048
     Dates: start: 20021224, end: 20051208
  19. SENNOSIDE [Concomitant]
     Route: 048
     Dates: start: 20051209
  20. OMEPRAZOLE [Concomitant]
     Indication: GASTRIC ULCER
     Route: 048
     Dates: start: 20021029, end: 20021125
  21. LOXOPROFEN SODIUM [Concomitant]
     Indication: HEADACHE
     Route: 048
     Dates: start: 20021224, end: 20051208
  22. TRIAZOLAM [Concomitant]
     Indication: INSOMNIA
     Route: 048
     Dates: start: 20021226, end: 20030108
  23. ITOPRIDE HYDROCHLORIDE [Concomitant]
     Indication: GASTRITIS
     Route: 048
     Dates: start: 20030109, end: 20040412
  24. ITOPRIDE HYDROCHLORIDE [Concomitant]
     Route: 048
     Dates: start: 20040708, end: 20051020
  25. MAGNESIUM OXIDE [Concomitant]
     Indication: CONSTIPATION
     Route: 048
     Dates: start: 19981101, end: 20000331
  26. MAGNESIUM OXIDE [Concomitant]
     Route: 048
     Dates: start: 20000401, end: 20020212
  27. MAGNESIUM OXIDE [Concomitant]
     Route: 048
     Dates: start: 20021028, end: 20021202
  28. MAGNESIUM OXIDE [Concomitant]
     Route: 048
     Dates: start: 20030107, end: 20051020
  29. MAGNESIUM OXIDE [Concomitant]
     Route: 048
     Dates: start: 20051214, end: 20060104
  30. MAGNESIUM OXIDE [Concomitant]
     Route: 048
     Dates: start: 20060105
  31. RIBAVIRIN [Concomitant]
     Indication: HEPATITIS C
     Route: 048
     Dates: start: 20020805, end: 20021028
  32. OCTOCOG ALFA [Concomitant]
     Indication: FACTOR VIII DEFICIENCY
     Route: 042
     Dates: start: 20030610, end: 20060402
  33. OCTOCOG ALFA [Concomitant]
     Route: 042
     Dates: start: 20060402
  34. DIGESTIVE ENZYME PREPARATION [Concomitant]
     Indication: GASTRITIS
     Route: 048
     Dates: start: 20030919, end: 20040412
  35. LORAZEPAM [Concomitant]
     Indication: INSOMNIA
     Route: 048
     Dates: start: 20030921, end: 20031127
  36. LORAZEPAM [Concomitant]
     Indication: NAUSEA
     Route: 048
     Dates: start: 20051227, end: 20060604
  37. LORAZEPAM [Concomitant]
     Indication: VOMITING
  38. SULPIRIDE [Concomitant]
     Indication: GASTRITIS
     Route: 048
     Dates: start: 20040528, end: 20051020
  39. DICLOFENAC SODIUM [Concomitant]
     Indication: HEADACHE
     Route: 048
     Dates: start: 20040529
  40. DICLOFENAC SODIUM [Concomitant]
     Route: 048
     Dates: start: 20050401, end: 20060106
  41. RANITIDINE HYDROCHLORIDE [Concomitant]
     Indication: GASTRIC ULCER
     Route: 048
     Dates: end: 20051226
  42. TRICHLORMETHIAZIDE [Concomitant]
     Indication: HYPERTENSION
     Route: 048
     Dates: start: 20050804, end: 20051027
  43. MAINTENANCE FLUID/ELECTROLYTES INFUSION [Concomitant]
     Indication: ANOREXIA
     Route: 042
     Dates: start: 20051027, end: 20051027
  44. MAINTENANCE FLUID/ELECTROLYTES INFUSION [Concomitant]
     Indication: MALNUTRITION
  45. B-KOMPLEX [Concomitant]
     Indication: ANOREXIA
     Route: 042
     Dates: start: 20051027, end: 20051118
  46. B-KOMPLEX [Concomitant]
     Indication: MALNUTRITION
  47. DEXTROSE, AMINO-ACID, ELECTROLYTE INFUSION/MULTIPLE VITAMIN [Concomitant]
     Indication: ANOREXIA
     Route: 042
     Dates: start: 20051028, end: 20051118
  48. DEXTROSE, AMINO-ACID, ELECTROLYTE INFUSION/MULTIPLE VITAMIN [Concomitant]
     Indication: MALNUTRITION
     Route: 042
     Dates: start: 20051119, end: 20051218
  49. ESTAZOLAM [Concomitant]
     Indication: INSOMNIA
     Route: 048
     Dates: start: 20051104, end: 20051115
  50. ESTAZOLAM [Concomitant]
     Route: 048
     Dates: start: 20051116, end: 20051226
  51. MIANSERIN HYDROCHLORIDE [Concomitant]
     Indication: INSOMNIA
     Route: 048
     Dates: start: 20051116, end: 20051226
  52. MIANSERIN HYDROCHLORIDE [Concomitant]
     Route: 048
     Dates: start: 20060605
  53. URSODIOL [Concomitant]
     Indication: CHRONIC HEPATITIS
     Dates: start: 20051226, end: 20060108
  54. URSODIOL [Concomitant]
     Route: 048
     Dates: start: 20060713, end: 20070123
  55. ROXATIDINE ACETATE HCL [Concomitant]
     Indication: GASTRIC ULCER
     Route: 048
     Dates: start: 20051227
  56. STRONGER NEO-MINOPHAGEN C [Concomitant]
     Indication: CHRONIC HEPATITIS
     Route: 042
     Dates: start: 20060109, end: 20060205
  57. STRONGER NEO-MINOPHAGEN C [Concomitant]
     Indication: HEPATITIS C
     Route: 042
     Dates: start: 20070129, end: 20070301
  58. MELOXICAM [Concomitant]
     Indication: HEADACHE
     Route: 048
     Dates: start: 20060107
  59. FLUCONAZOLE [Concomitant]
     Indication: ORAL CANDIDIASIS
     Route: 048
     Dates: start: 20060118, end: 20060227
  60. FERRIC OXIDE, SACCHARATED [Concomitant]
     Indication: ANAEMIA
     Route: 042
     Dates: start: 20060217, end: 20060302
  61. FERRIC SODIUM CITRATE [Concomitant]
     Indication: ANAEMIA
     Route: 048
     Dates: start: 20051020, end: 20051027
  62. FERRIC SODIUM CITRATE [Concomitant]
     Route: 048
     Dates: start: 20051104, end: 20051219
  63. FLUNITRAZEPAM [Concomitant]
     Indication: INSOMNIA
     Route: 048
     Dates: start: 20060605
  64. MILNACIPRAN HYDROCHLORIDE [Concomitant]
     Indication: INSOMNIA
     Route: 048
     Dates: start: 20060605

REACTIONS (20)
  - ABDOMINAL PAIN [None]
  - ALANINE AMINOTRANSFERASE INCREASED [None]
  - ANAEMIA [None]
  - APHTHOUS STOMATITIS [None]
  - ASPARTATE AMINOTRANSFERASE INCREASED [None]
  - BEHCET'S SYNDROME [None]
  - CATARACT [None]
  - CHEST PAIN [None]
  - CUBITAL TUNNEL SYNDROME [None]
  - DIABETES MELLITUS [None]
  - DISSEMINATED INTRAVASCULAR COAGULATION [None]
  - GASTRIC ULCER [None]
  - HYPERLACTACIDAEMIA [None]
  - HYPERTENSION [None]
  - HYPOAESTHESIA [None]
  - ILEAL ULCER [None]
  - LIVER DISORDER [None]
  - MELAENA [None]
  - PANCREATITIS ACUTE [None]
  - PNEUMONIA [None]
